FAERS Safety Report 18834566 (Version 1)
Quarter: 2021Q1

REPORT INFORMATION
  Report Type: Spontaneous
  Country: US (occurrence: US)
  Receive Date: 20210203
  Receipt Date: 20210203
  Transmission Date: 20210419
  Serious: Yes (Other)
  Sender: FDA-Public Use
  Company Number: US-TEVA-2021-US-1873487

PATIENT
  Age: 56 Year

DRUGS (1)
  1. QVAR REDIHALER [Suspect]
     Active Substance: BECLOMETHASONE DIPROPIONATE
     Route: 065

REACTIONS (2)
  - Pulmonary congestion [Recovering/Resolving]
  - Throat clearing [Unknown]

NARRATIVE: CASE EVENT DATE: 202101
